FAERS Safety Report 7235993-0 (Version None)
Quarter: 2011Q1

REPORT INFORMATION
  Report Type: 
  Country: None (occurrence: None)
  Receive Date: 20110120
  Receipt Date: 20110118
  Transmission Date: 20110831
  Serious: Yes (Other)
  Sender: FDA-Public Use
  Company Number: B0694527A

PATIENT
  Sex: Female

DRUGS (2)
  1. REMERON [Concomitant]
     Indication: DEPRESSION
     Dosage: 45MG PER DAY
     Route: 048
     Dates: start: 20090101
  2. WELLBUTRIN RETARD [Suspect]
     Indication: DEPRESSION
     Dosage: 150MG PER DAY
     Route: 048
     Dates: start: 20101001

REACTIONS (1)
  - AMENORRHOEA [None]
